FAERS Safety Report 10151247 (Version 1)
Quarter: 2014Q2

REPORT INFORMATION
  Report Type: Spontaneous
  Country: US (occurrence: US)
  Receive Date: 20140502
  Receipt Date: 20140502
  Transmission Date: 20141212
  Serious: No
  Sender: FDA-Public Use
  Company Number: US-ASTRAZENECA-2014SE02453

PATIENT
  Sex: Female

DRUGS (5)
  1. PRILOSEC OTC [Suspect]
     Route: 048
     Dates: start: 20140101, end: 20140105
  2. ESTROGEN NOS [Concomitant]
     Dosage: UNKNOWN
  3. PROVERA [Concomitant]
     Dosage: UNKNOWN
  4. IMITREX [Concomitant]
     Dosage: UNKNOWN
  5. MAGNESIUM [Concomitant]
     Dosage: UNKNOWN

REACTIONS (3)
  - Migraine [Recovering/Resolving]
  - Headache [Recovering/Resolving]
  - Inappropriate schedule of drug administration [Unknown]
